FAERS Safety Report 5163851-4 (Version None)
Quarter: 2006Q4

REPORT INFORMATION
  Report Type: 
  Country: None (occurrence: None)
  Receive Date: 20061204
  Receipt Date: 20061120
  Transmission Date: 20070319
  Serious: Yes (Other)
  Sender: FDA-Public Use
  Company Number: US-ROCHE-472178

PATIENT
  Age: 59 Year
  Sex: Female

DRUGS (4)
  1. BONIVA [Suspect]
     Indication: OSTEOPOROSIS
     Route: 048
     Dates: start: 20060115, end: 20060115
  2. ZOCOR [Concomitant]
  3. ZETIA [Concomitant]
  4. SINGULAIR [Concomitant]

REACTIONS (3)
  - DYSPNOEA [None]
  - GASTROOESOPHAGEAL REFLUX DISEASE [None]
  - THROAT TIGHTNESS [None]
